FAERS Safety Report 8604368-1 (Version None)
Quarter: 2012Q3

REPORT INFORMATION
  Report Type: 
  Country: None (occurrence: None)
  Receive Date: 20120820
  Receipt Date: 20120810
  Transmission Date: 20120928
  Serious: Yes (Hospitalization)
  Sender: FDA-Public Use
  Company Number: US-BAYER-2012-032612

PATIENT
  Age: 24 Year
  Sex: Female
  Weight: 52 kg

DRUGS (4)
  1. FLUTICASONE PROPIONATE [Concomitant]
     Dosage: 250-25 DISKUS
  2. YAZ [Suspect]
     Indication: CONTRACEPTION
     Dosage: UNK
     Dates: start: 20080701, end: 20101001
  3. VENTOLIN [Concomitant]
     Dosage: 90 MCG
  4. CALCIUM [Concomitant]
     Indication: MEDICAL DIET
     Route: 048

REACTIONS (7)
  - TRANSVERSE SINUS THROMBOSIS [None]
  - INJURY [None]
  - EMOTIONAL DISTRESS [None]
  - PAIN [None]
  - SUPERIOR SAGITTAL SINUS THROMBOSIS [None]
  - GENERAL PHYSICAL HEALTH DETERIORATION [None]
  - ANXIETY [None]
